FAERS Safety Report 21658343 (Version 5)
Quarter: 2023Q4

REPORT INFORMATION
  Report Type: Spontaneous
  Country: CA (occurrence: CA)
  Receive Date: 20221129
  Receipt Date: 20231218
  Transmission Date: 20240110
  Serious: Yes (Other)
  Sender: FDA-Public Use
  Company Number: CA-PFIZER INC-2020454944

PATIENT
  Age: 52 Year
  Sex: Female
  Weight: 71.3 kg

DRUGS (17)
  1. IBRANCE [Suspect]
     Active Substance: PALBOCICLIB
     Indication: Breast cancer metastatic
     Dosage: 125 MG, CYCLIC (DAILY FOR 21 DAYS FOLLOWED BY 7 DAYS OFF TREATMENT)
     Route: 048
     Dates: start: 20201119
  2. IBRANCE [Suspect]
     Active Substance: PALBOCICLIB
     Dosage: 100 MG, CYCLIC (DAILY FOR 21 DAYS FOLLOWED BY 7 DAYS OFF)
     Route: 048
  3. IBRANCE [Suspect]
     Active Substance: PALBOCICLIB
     Dosage: 100 MG, CYCLIC (DAILY FOR 21 DAYS FOLLOWED BY 7 DAYS OFF) (M: 21CAPS)
     Route: 048
  4. IBRANCE [Suspect]
     Active Substance: PALBOCICLIB
     Dosage: 100 MG, CYCLIC  (DAILY FOR 21 DAYS FOLLOWED BY 7 DAYS OFF)
     Route: 048
     Dates: start: 20211027
  5. IBRANCE [Suspect]
     Active Substance: PALBOCICLIB
     Dosage: 100 MG, CYCLIC DAILY FOR 21 DAYS THEN STOP FOR 7 DAYS
     Route: 048
     Dates: start: 20220630
  6. IBRANCE [Suspect]
     Active Substance: PALBOCICLIB
     Dosage: 100 MG, CYCLIC DAILY X 21/28 (21 OUT OF 28 DAYS)
     Route: 048
     Dates: start: 20221027
  7. IBRANCE [Suspect]
     Active Substance: PALBOCICLIB
     Dosage: 100 MG DAILY X 21 DAYS THEN STOP FOR 7 DAYS
     Route: 048
     Dates: start: 20231207
  8. CALCIUM [Concomitant]
     Active Substance: CALCIUM
     Dosage: UNK
  9. COVID-19 VACCINE [Concomitant]
     Indication: COVID-19 immunisation
     Dosage: UNK, SINGLE
     Dates: start: 202105, end: 202105
  10. ESCITALOPRAM [Concomitant]
     Active Substance: ESCITALOPRAM OXALATE
     Dosage: UNK
  11. FULVESTRANT [Concomitant]
     Active Substance: FULVESTRANT
     Dosage: UNK
  12. LETROZOLE [Concomitant]
     Active Substance: LETROZOLE
     Dosage: 2.5 MG, DAILY
  13. NEBIVOLOL [Concomitant]
     Active Substance: NEBIVOLOL
     Indication: Hypertension
     Dosage: UNK
  14. VITAMIN D NOS [Concomitant]
     Active Substance: VITAMIN D NOS
     Dosage: UNK
  15. WOBENZYM N [BROMELAINS;TRYPSIN] [Concomitant]
     Dosage: UNK
  16. GOSERELIN [Concomitant]
     Active Substance: GOSERELIN
     Dosage: UNK
  17. ZOMETA [Concomitant]
     Active Substance: ZOLEDRONIC ACID
     Dosage: UNK

REACTIONS (21)
  - Back pain [Unknown]
  - Soft tissue disorder [Unknown]
  - Gallbladder enlargement [Not Recovered/Not Resolved]
  - Weight increased [Unknown]
  - Neutrophil count decreased [Unknown]
  - Fatigue [Not Recovered/Not Resolved]
  - Constipation [Recovered/Resolved]
  - Periarthritis [Recovering/Resolving]
  - Musculoskeletal discomfort [Unknown]
  - Weight decreased [Unknown]
  - Hypotension [Unknown]
  - Body temperature decreased [Unknown]
  - Hepatic steatosis [Unknown]
  - Cholelithiasis [Not Recovered/Not Resolved]
  - Left atrial enlargement [Recovering/Resolving]
  - Atelectasis [Not Recovered/Not Resolved]
  - Diverticulum intestinal [Not Recovered/Not Resolved]
  - Neoplasm progression [Recovering/Resolving]
  - Umbilical hernia [Unknown]
  - Oesophageal disorder [Unknown]
  - Renal cyst [Unknown]

NARRATIVE: CASE EVENT DATE: 20201218
